FAERS Safety Report 12884698 (Version 1)
Quarter: 2016Q4

REPORT INFORMATION
  Report Type: Spontaneous
  Country: US (occurrence: US)
  Receive Date: 20161026
  Receipt Date: 20161026
  Transmission Date: 20170207
  Serious: Yes (Life-Threatening, Hospitalization)
  Sender: FDA-Public Use
  Company Number: US-JNJFOC-20161019778

PATIENT
  Age: 16 Year
  Sex: Female

DRUGS (2)
  1. IBUPROFEN. [Suspect]
     Active Substance: IBUPROFEN
     Route: 048
  2. IBUPROFEN. [Suspect]
     Active Substance: IBUPROFEN
     Indication: PRODUCT USED FOR UNKNOWN INDICATION
     Route: 048

REACTIONS (10)
  - Transaminases increased [Recovered/Resolved]
  - Mental status changes [Recovered/Resolved]
  - Renal failure [Recovered/Resolved]
  - Retroperitoneal haematoma [Recovered/Resolved]
  - Hypotension [Recovered/Resolved]
  - Disseminated intravascular coagulation [Recovered/Resolved]
  - Vomiting [Recovered/Resolved]
  - Pleural effusion [Recovered/Resolved]
  - Metabolic acidosis [Recovered/Resolved]
  - Overdose [Recovered/Resolved]
